FAERS Safety Report 7950190-9 (Version None)
Quarter: 2011Q4

REPORT INFORMATION
  Report Type: 
  Country: None (occurrence: None)
  Receive Date: 20111130
  Receipt Date: 20110304
  Transmission Date: 20120403
  Serious: Yes (Hospitalization, Other)
  Sender: FDA-Public Use
  Company Number: PHHY2011TW09658

PATIENT
  Sex: Female

DRUGS (2)
  1. GLEEVEC [Suspect]
     Dosage: 200-300 MG, DAILY
     Route: 048
     Dates: end: 20110301
  2. GLEEVEC [Suspect]
     Indication: GASTROINTESTINAL STROMAL TUMOUR
     Dosage: 400 MG, DAILY
     Route: 048
     Dates: start: 20101125

REACTIONS (5)
  - LUNG DISORDER [None]
  - COUGH [None]
  - DYSPNOEA [None]
  - ASTHMA [None]
  - SKIN DISORDER [None]
